FAERS Safety Report 8960273 (Version 1)
Quarter: 2012Q4

REPORT INFORMATION
  Report Type: 
  Country: MX (occurrence: MX)
  Receive Date: 20121212
  Receipt Date: 20121212
  Transmission Date: 20130627
  Serious: Yes (Death)
  Sender: FDA-Public Use
  Company Number: MX-PFIZER INC-2012309880

PATIENT
  Age: 82 Year
  Sex: Female

DRUGS (1)
  1. DETRUSITOL [Suspect]
     Indication: OVERACTIVE BLADDER
     Dosage: 2 mg, UNK
     Route: 048

REACTIONS (1)
  - Death [Fatal]
